FAERS Safety Report 5081010-0 (Version None)
Quarter: 2006Q3

REPORT INFORMATION
  Report Type: 
  Country: None (occurrence: None)
  Receive Date: 20060810
  Receipt Date: 20060731
  Transmission Date: 20061208
  Serious: Yes (Hospitalization)
  Sender: FDA-Public Use
  Company Number: HQWYE550431JUL06

PATIENT
  Age: 73 Year
  Sex: Male

DRUGS (13)
  1. RAPAMUNE [Suspect]
     Indication: PROPHYLAXIS AGAINST TRANSPLANT REJECTION
     Dosage: 4 MG 1X PER 1 DAY
     Dates: start: 20030306
  2. CELLCEPT [Concomitant]
  3. PREDNISONE TAB [Concomitant]
  4. TRANCOREX (AMIODARONE) [Concomitant]
  5. COZAAR [Concomitant]
  6. BRAINAL (NIMODIPINE) [Concomitant]
  7. SEPTRIN (SUFAMETHOXAZOLE/TRIMETHOPRIM) [Concomitant]
  8. FUROSEMIDE [Concomitant]
  9. HIDROSALURETIL (HYDRCHLOROTHIAZIDE) [Concomitant]
  10. RANITIDINE [Concomitant]
  11. BOI-K ASPARTICO (ASPARTIC ACID/POTASSIUM ASCORBATE) [Concomitant]
  12. ATORVASTAIN (ATORVASTATIN) [Concomitant]
  13. EZETROL (EZETIMIBE) [Concomitant]

REACTIONS (3)
  - CHILLS [None]
  - GASTROENTERITIS [None]
  - PYREXIA [None]
